FAERS Safety Report 13757232 (Version 1)
Quarter: 2017Q3

REPORT INFORMATION
  Report Type: Spontaneous
  Country: US (occurrence: US)
  Receive Date: 20170714
  Receipt Date: 20170714
  Transmission Date: 20171127
  Serious: Yes (Hospitalization, Disabling)
  Sender: FDA-Public Use
  Company Number: None

PATIENT
  Age: 62 Year
  Sex: Female
  Weight: 67.5 kg

DRUGS (4)
  1. MAGNESIUM [Concomitant]
     Active Substance: MAGNESIUM
  2. DAILY VITAMIN [Concomitant]
     Active Substance: VITAMINS
  3. FLECAINIDE [Concomitant]
     Active Substance: FLECAINIDE
  4. CLONAZEPAM. [Suspect]
     Active Substance: CLONAZEPAM
     Indication: ANXIETY
     Dosage: ?          OTHER STRENGTH:MG;QUANTITY:1 TABLET(S);?
     Route: 048
     Dates: start: 19970801, end: 20170526

REACTIONS (6)
  - Gastrointestinal pain [None]
  - Withdrawal syndrome [None]
  - Irritable bowel syndrome [None]
  - Palpitations [None]
  - Atrial fibrillation [None]
  - Abdominal discomfort [None]

NARRATIVE: CASE EVENT DATE: 20170114
